FAERS Safety Report 9319540 (Version 1)
Quarter: 2013Q2

REPORT INFORMATION
  Report Type: Spontaneous
  Country: US (occurrence: US)
  Receive Date: 20130530
  Receipt Date: 20130530
  Transmission Date: 20140414
  Serious: No
  Sender: FDA-Public Use
  Company Number: US-GLAXOSMITHKLINE-A1000155A

PATIENT
  Sex: Male

DRUGS (2)
  1. FLOLAN [Suspect]
     Indication: PRODUCT USED FOR UNKNOWN INDICATION
     Dosage: 33NGKM CONTINUOUS
     Route: 042
     Dates: start: 20040816
  2. CPAP [Concomitant]

REACTIONS (3)
  - Pain in jaw [Unknown]
  - Pain in extremity [Unknown]
  - Rash generalised [Unknown]
